FAERS Safety Report 17440711 (Version 1)
Quarter: 2020Q1

REPORT INFORMATION
  Report Type: Spontaneous
  Country: US (occurrence: US)
  Receive Date: 20200220
  Receipt Date: 20200220
  Transmission Date: 20200409
  Serious: Yes (Other)
  Sender: FDA-Public Use
  Company Number: US-PFIZER INC-2020074192

PATIENT
  Age: 60 Year
  Sex: Female

DRUGS (1)
  1. XELJANZ [Suspect]
     Active Substance: TOFACITINIB CITRATE
     Dosage: 10 MG, UNK
     Dates: start: 20200213

REACTIONS (5)
  - Chills [Unknown]
  - Malaise [Unknown]
  - Gastrointestinal haemorrhage [Recovering/Resolving]
  - Feeling abnormal [Unknown]
  - Fatigue [Unknown]
